FAERS Safety Report 18732715 (Version 13)
Quarter: 2021Q2

REPORT INFORMATION
  Report Type: Report from Study
  Country: IL (occurrence: IL)
  Receive Date: 20210112
  Receipt Date: 20210624
  Transmission Date: 20210717
  Serious: Yes (Hospitalization)
  Sender: FDA-Public Use
  Company Number: IL-EISAI MEDICAL RESEARCH-EC-2021-086345

PATIENT
  Age: 61 Year
  Sex: Female
  Weight: 62.5 kg

DRUGS (28)
  1. AZENIL [Concomitant]
     Dates: start: 20201228, end: 20210101
  2. ARCOXIA [Concomitant]
     Active Substance: ETORICOXIB
     Dates: start: 20201228, end: 20201228
  3. OXYCOD [OXYCODONE HYDROCHLORIDE] [Concomitant]
     Dates: start: 20201231, end: 20201231
  4. PEMBROLIZUMAB. [Suspect]
     Active Substance: PEMBROLIZUMAB
     Indication: MALIGNANT MELANOMA STAGE IV
     Route: 042
     Dates: start: 20201217, end: 20201217
  5. AZENIL [Concomitant]
     Dates: start: 20201227, end: 20201227
  6. OPTALGIN [Concomitant]
     Active Substance: METAMIZOLE
     Dates: start: 20201227, end: 20201228
  7. ZALDIAR [Concomitant]
     Active Substance: ACETAMINOPHEN\TRAMADOL HYDROCHLORIDE
     Dates: start: 20201231, end: 20210114
  8. OXYCOD [OXYCODONE HYDROCHLORIDE] [Concomitant]
     Dates: start: 20210103, end: 20210103
  9. LENVATINIB [Suspect]
     Active Substance: LENVATINIB
     Indication: MALIGNANT MELANOMA STAGE III
  10. POTASSIUM CHLORIDE. [Concomitant]
     Active Substance: POTASSIUM CHLORIDE
     Route: 042
     Dates: start: 20201227, end: 20201228
  11. MAGNESIUM SULFATE. [Concomitant]
     Active Substance: MAGNESIUM SULFATE
     Dates: start: 20201231, end: 20201231
  12. PERCOCET [Concomitant]
     Active Substance: ACETAMINOPHEN\OXYCODONE HYDROCHLORIDE
     Dates: start: 20201229, end: 20210103
  13. SODIUM CHLORIDE. [Concomitant]
     Active Substance: SODIUM CHLORIDE
     Dates: start: 20201223, end: 20210103
  14. ACAMOL [PARACETAMOL] [Concomitant]
     Active Substance: ACETAMINOPHEN
     Dates: start: 20201227, end: 20201228
  15. PRAMIN [METOCLOPRAMIDE HYDROCHLORIDE] [Concomitant]
     Active Substance: METOCLOPRAMIDE HYDROCHLORIDE
     Dates: start: 20201231
  16. OPTALGIN [Concomitant]
     Active Substance: METAMIZOLE
     Dates: start: 20201231, end: 20201231
  17. TRITACE [Concomitant]
     Active Substance: RAMIPRIL
     Dates: start: 20140101
  18. POTASSIUM CHLORIDE. [Concomitant]
     Active Substance: POTASSIUM CHLORIDE
     Route: 042
     Dates: start: 20201231, end: 20201231
  19. ACAMOL [PARACETAMOL] [Concomitant]
     Active Substance: ACETAMINOPHEN
     Dates: start: 20201223, end: 20201226
  20. MAGNESIUM OXIDE. [Concomitant]
     Active Substance: MAGNESIUM OXIDE
     Dates: start: 20201229
  21. TRAMAL [Concomitant]
     Active Substance: TRAMADOL
     Dates: start: 20210103, end: 20210103
  22. ATORVA [Concomitant]
     Active Substance: ATORVASTATIN
     Dates: start: 20200101
  23. LENVATINIB [Suspect]
     Active Substance: LENVATINIB
     Indication: MALIGNANT MELANOMA STAGE IV
     Route: 048
     Dates: start: 20201217, end: 20201223
  24. PEMBROLIZUMAB. [Suspect]
     Active Substance: PEMBROLIZUMAB
     Indication: MALIGNANT MELANOMA STAGE III
  25. VITAMIN D NOS [Concomitant]
     Active Substance: VITAMIN D NOS
     Dates: start: 20200701
  26. MAGNESIUM SULFATE. [Concomitant]
     Active Substance: MAGNESIUM SULFATE
     Dates: start: 20201227, end: 20201227
  27. POTASSIUM CHLORIDE. [Concomitant]
     Active Substance: POTASSIUM CHLORIDE
     Route: 042
     Dates: start: 20201223, end: 20201223
  28. SLOW?K [Concomitant]
     Active Substance: POTASSIUM CHLORIDE
     Dates: start: 20201228

REACTIONS (1)
  - Guillain-Barre syndrome [Recovered/Resolved]

NARRATIVE: CASE EVENT DATE: 20210103
